FAERS Safety Report 15617343 (Version 1)
Quarter: 2018Q4

REPORT INFORMATION
  Report Type: Spontaneous
  Country: US (occurrence: US)
  Receive Date: 20181112
  Receipt Date: 20181112
  Transmission Date: 20190205
  Serious: No
  Sender: FDA-Public Use
  Company Number: None

PATIENT
  Sex: Female
  Weight: 85.5 kg

DRUGS (12)
  1. LUTEIN [Concomitant]
     Active Substance: LUTEIN
  2. EXCEDRIN [Concomitant]
     Active Substance: ACETAMINOPHEN\ASPIRIN\CAFFEINE
  3. NADOLOL 40 MG [Suspect]
     Active Substance: NADOLOL
  4. MUCINEX [Concomitant]
     Active Substance: GUAIFENESIN
  5. MOTRIN [Concomitant]
     Active Substance: IBUPROFEN
  6. SUDAFED [Concomitant]
     Active Substance: PSEUDOEPHEDRINE HYDROCHLORIDE
  7. TYLENOL [Concomitant]
     Active Substance: ACETAMINOPHEN
  8. AIMOVIG [Suspect]
     Active Substance: ERENUMAB-AOOE
     Indication: MIGRAINE
     Dosage: ?          QUANTITY:1 INJECTION(S);OTHER FREQUENCY:MONTHLY;?
     Route: 030
  9. AIMOVIG [Suspect]
     Active Substance: ERENUMAB-AOOE
     Indication: CEREBRAL HAEMORRHAGE
     Dosage: ?          QUANTITY:1 INJECTION(S);OTHER FREQUENCY:MONTHLY;?
     Route: 030
  10. TOPIRAMATE 50 MG [Suspect]
     Active Substance: TOPIRAMATE
  11. BABY ASPIRIN [Concomitant]
     Active Substance: ASPIRIN
  12. DILAUDID [Concomitant]
     Active Substance: HYDROMORPHONE HYDROCHLORIDE

REACTIONS (10)
  - Constipation [None]
  - Drug ineffective [None]
  - Vision blurred [None]
  - Back pain [None]
  - Hypotension [None]
  - Poor peripheral circulation [None]
  - Renal pain [None]
  - Colitis ulcerative [None]
  - Abdominal pain [None]
  - Headache [None]
